FAERS Safety Report 4968605-7 (Version None)
Quarter: 2006Q2

REPORT INFORMATION
  Report Type: 
  Country: None (occurrence: None)
  Receive Date: 20060405
  Receipt Date: 20060328
  Transmission Date: 20061013
  Serious: No
  Sender: FDA-Public Use
  Company Number: ZONI002295

PATIENT
  Age: 42 Year
  Sex: Female

DRUGS (4)
  1. ZONISAMIDE [Suspect]
     Indication: CONVULSION
     Dosage: 200 MG, 1 IN 1 D, ORAL
     Route: 048
     Dates: start: 20060201, end: 20060302
  2. ZONISAMIDE [Suspect]
     Indication: DEPRESSED LEVEL OF CONSCIOUSNESS
     Dosage: 200 MG, 1 IN 1 D, ORAL
     Route: 048
     Dates: start: 20060201, end: 20060302
  3. PASIL (PAZUFLOXACIN MESILATE) [Concomitant]
  4. CEREB (VALPROATE SODIUM) [Concomitant]

REACTIONS (5)
  - ALANINE AMINOTRANSFERASE INCREASED [None]
  - ASPARTATE AMINOTRANSFERASE INCREASED [None]
  - HEPATIC FUNCTION ABNORMAL [None]
  - THROMBOCYTOPENIA [None]
  - VIRAL INFECTION [None]
